FAERS Safety Report 24088140 (Version 1)
Quarter: 2024Q3

REPORT INFORMATION
  Report Type: Spontaneous
  Country: DE (occurrence: DE)
  Receive Date: 20240715
  Receipt Date: 20240715
  Transmission Date: 20241017
  Serious: Yes (Other)
  Sender: DR REDDYS
  Company Number: DE-GERMAN-LIT/DEU/24/0009825

PATIENT
  Age: 41 Year
  Sex: Male

DRUGS (6)
  1. CYCLOPHOSPHAMIDE [Suspect]
     Active Substance: CYCLOPHOSPHAMIDE
     Indication: Antisynthetase syndrome
     Route: 042
  2. PREDNISOLONE [Concomitant]
     Active Substance: PREDNISOLONE
     Indication: Antisynthetase syndrome
     Dosage: 10-250MG PER DAY FOR 18?MONTH
  3. RITUXIMAB [Concomitant]
     Active Substance: RITUXIMAB
     Indication: Antisynthetase syndrome
     Dosage: 2 X 1G
     Route: 042
  4. RITUXIMAB [Concomitant]
     Active Substance: RITUXIMAB
  5. IMMUNOGLOBULINS [Concomitant]
     Indication: Antisynthetase syndrome
  6. TACROLIMUS [Concomitant]
     Active Substance: TACROLIMUS
     Indication: Antisynthetase syndrome

REACTIONS (1)
  - Drug ineffective for unapproved indication [Unknown]
